FAERS Safety Report 6304607-6 (Version None)
Quarter: 2009Q3

REPORT INFORMATION
  Report Type: 
  Country: None (occurrence: None)
  Receive Date: 20090811
  Receipt Date: 20090805
  Transmission Date: 20100115
  Serious: Yes (Other)
  Sender: FDA-Public Use
  Company Number: US-JNJFOC-20090801969

PATIENT
  Age: 63 Year
  Sex: Female

DRUGS (3)
  1. TOPAMAX [Suspect]
     Indication: EPILEPSY
     Route: 048
  2. LAMICTAL [Suspect]
     Indication: EPILEPSY
     Route: 048
  3. CARBATROL [Suspect]
     Indication: EPILEPSY
     Route: 048

REACTIONS (6)
  - DEHYDRATION [None]
  - DIZZINESS [None]
  - EPILEPSY [None]
  - HYPERSOMNIA [None]
  - NAUSEA [None]
  - VOMITING [None]
